FAERS Safety Report 10515967 (Version 5)
Quarter: 2014Q4

REPORT INFORMATION
  Report Type: Report from Study
  Country: CA (occurrence: CA)
  Receive Date: 20141014
  Receipt Date: 20141204
  Transmission Date: 20150528
  Serious: Yes (Other)
  Sender: FDA-Public Use
  Company Number: PHHY2013CA024321

PATIENT
  Age: 62 Year
  Sex: Male
  Weight: 110.2 kg

DRUGS (3)
  1. SANDOSTATIN LAR DEPOT [Suspect]
     Active Substance: OCTREOTIDE ACETATE
     Indication: CARCINOID TUMOUR OF THE STOMACH
     Dosage: 30 MG, EVERY 4 WEEKS
     Route: 030
     Dates: start: 20131024
  2. SANDOSTATIN LAR DEPOT [Suspect]
     Active Substance: OCTREOTIDE ACETATE
     Dosage: 30 MG, EVERY 4 WEEKS
     Route: 030
     Dates: start: 20140515
  3. SANDOSTATIN LAR DEPOT [Suspect]
     Active Substance: OCTREOTIDE ACETATE
     Indication: NEUROENDOCRINE TUMOUR
     Dosage: 30 MG, EVERY 4 WEEKS
     Route: 030
     Dates: start: 20120924

REACTIONS (21)
  - Asthenia [Unknown]
  - Fatigue [Unknown]
  - Anxiety [Unknown]
  - Musculoskeletal stiffness [Recovered/Resolved]
  - Upper extremity mass [Unknown]
  - Hyperhidrosis [Recovering/Resolving]
  - Needle issue [Unknown]
  - Groin pain [Unknown]
  - Blood pressure systolic increased [Unknown]
  - Flushing [Unknown]
  - Abdominal pain lower [Unknown]
  - Constipation [Unknown]
  - Renal pain [Unknown]
  - Gait disturbance [Unknown]
  - Nausea [Unknown]
  - Arthralgia [Recovered/Resolved]
  - Back pain [Not Recovered/Not Resolved]
  - Depression [Unknown]
  - Weight increased [Unknown]
  - Abdominal pain [Recovering/Resolving]
  - Flank pain [Unknown]

NARRATIVE: CASE EVENT DATE: 20131026
